FAERS Safety Report 19067657 (Version 4)
Quarter: 2021Q3

REPORT INFORMATION
  Report Type: Report from Study
  Country: US (occurrence: US)
  Receive Date: 20210329
  Receipt Date: 20210914
  Transmission Date: 20211014
  Serious: No
  Sender: FDA-Public Use
  Company Number: NVSC2021US067764

PATIENT
  Age: 3 Year
  Sex: Female

DRUGS (1)
  1. ILARIS [Suspect]
     Active Substance: CANAKINUMAB
     Indication: PYREXIA
     Dosage: 60 MG, OTHER, EVERY 4 WEEKS
     Route: 058
     Dates: start: 20210316

REACTIONS (5)
  - Gastric disorder [Recovered/Resolved]
  - Skin exfoliation [Unknown]
  - Abnormal faeces [Unknown]
  - Vomiting [Unknown]
  - Diarrhoea [Recovered/Resolved]

NARRATIVE: CASE EVENT DATE: 20210320
